FAERS Safety Report 5224162-1 (Version None)
Quarter: 2007Q1

REPORT INFORMATION
  Report Type: 
  Country: None (occurrence: None)
  Receive Date: 20070130
  Receipt Date: 20070115
  Transmission Date: 20070707
  Serious: Yes (Other)
  Sender: FDA-Public Use
  Company Number: US-KINGPHARMUSA00001-K200700047

PATIENT

DRUGS (3)
  1. ALTACE [Suspect]
     Indication: HYPERTENSION
  2. HYDROCHLOROTHIAZIDE [Concomitant]
  3. ATENOLOL [Concomitant]

REACTIONS (6)
  - DERMATITIS BULLOUS [None]
  - ERYTHEMA [None]
  - LICHEN PLANUS [None]
  - MOUTH ULCERATION [None]
  - RASH PRURITIC [None]
  - SKIN EXFOLIATION [None]
